FAERS Safety Report 16241212 (Version 6)
Quarter: 2019Q2

REPORT INFORMATION
  Report Type: Spontaneous
  Country: US (occurrence: US)
  Receive Date: 20190425
  Receipt Date: 20190508
  Transmission Date: 20190711
  Serious: Yes (Hospitalization, Other)
  Sender: FDA-Public Use
  Company Number: PHHY2019US093735

PATIENT
  Age: 62 Year
  Sex: Male

DRUGS (7)
  1. PREDNISONE. [Suspect]
     Active Substance: PREDNISONE
     Indication: IMMUNOSUPPRESSANT DRUG THERAPY
  2. VALGANCICLOVIR. [Concomitant]
     Active Substance: VALGANCICLOVIR
     Indication: PROPHYLAXIS
     Dosage: UNK
     Route: 065
  3. PREDNISONE. [Suspect]
     Active Substance: PREDNISONE
     Indication: RENAL TRANSPLANT
     Dosage: 5 MG, QD
     Route: 065
  4. BELATACEPT [Suspect]
     Active Substance: BELATACEPT
     Indication: IMMUNOSUPPRESSANT DRUG THERAPY
  5. PREDNISOLONE. [Suspect]
     Active Substance: PREDNISOLONE
     Indication: RENAL TRANSPLANT
     Dosage: UNK
     Route: 065
  6. BELATACEPT [Suspect]
     Active Substance: BELATACEPT
     Indication: RENAL TRANSPLANT
     Dosage: 675 MG, Q28 DAYS
     Route: 065
  7. PREDNISOLONE. [Suspect]
     Active Substance: PREDNISOLONE
     Indication: IMMUNOSUPPRESSANT DRUG THERAPY

REACTIONS (15)
  - Pulmonary oedema [Recovered/Resolved]
  - Vomiting [Unknown]
  - Hypoxia [Unknown]
  - Streptococcal bacteraemia [Recovered/Resolved]
  - Skin ulcer [Recovered/Resolved]
  - Nausea [Unknown]
  - Dyspnoea [Unknown]
  - Crepitations [Unknown]
  - Pyrexia [Unknown]
  - Chills [Unknown]
  - Sepsis [Recovered/Resolved]
  - Cytomegalovirus viraemia [Unknown]
  - Abdominal distension [Unknown]
  - Hypotension [Unknown]
  - Product use in unapproved indication [Unknown]
